FAERS Safety Report 21255161 (Version 1)
Quarter: 2022Q3

REPORT INFORMATION
  Report Type: Spontaneous
  Country: US (occurrence: None)
  Receive Date: 20220824
  Receipt Date: 20220824
  Transmission Date: 20221027
  Serious: No
  Sender: FDA-Public Use
  Company Number: None

PATIENT
  Sex: Male

DRUGS (2)
  1. COSENTYX [Suspect]
     Active Substance: SECUKINUMAB
     Indication: Spondyloarthropathy
     Dosage: INJECT 1 PEN (150 MG) UNDER THE SKIN (SUBCUTANEOUS INJECTION) EVERY 4 WEEKS STARTING ON WEEK 4
     Route: 058
     Dates: start: 20220322
  2. ELIQUIS [Concomitant]
     Active Substance: APIXABAN

REACTIONS (1)
  - Procedural pain [None]
